FAERS Safety Report 24260375 (Version 1)
Quarter: 2024Q3

REPORT INFORMATION
  Report Type: Spontaneous
  Country: US (occurrence: US)
  Receive Date: 20240828
  Receipt Date: 20240828
  Transmission Date: 20241016
  Serious: No
  Sender: SUNOVION
  Company Number: US-SUMITOMO PHARMA SWITZERLAND GMBH-2024SPA000709

PATIENT

DRUGS (2)
  1. GEMTESA [Suspect]
     Active Substance: VIBEGRON
     Indication: Micturition urgency
     Dosage: UNK
     Route: 065
  2. GEMTESA [Suspect]
     Active Substance: VIBEGRON
     Indication: Nocturia

REACTIONS (3)
  - Fluid retention [Unknown]
  - Micturition urgency [Unknown]
  - Nocturia [Unknown]
